FAERS Safety Report 8599848-1 (Version None)
Quarter: 2012Q3

REPORT INFORMATION
  Report Type: 
  Country: None (occurrence: None)
  Receive Date: 20120816
  Receipt Date: 20120814
  Transmission Date: 20120928
  Serious: No
  Sender: FDA-Public Use
  Company Number: US-PFIZER INC-2012199064

PATIENT
  Age: 65 Year
  Sex: Female
  Weight: 99.773 kg

DRUGS (3)
  1. XANAX [Suspect]
     Indication: SLEEP DISORDER
     Dosage: 0.5 MG, 1X/DAY
     Route: 048
  2. VENLAFAXINE [Concomitant]
     Indication: DEPRESSION
     Dosage: UNK
  3. XANAX [Suspect]
     Dosage: 0.5 MG, 1X/DAY
     Route: 048

REACTIONS (4)
  - DRUG SCREEN NEGATIVE [None]
  - BLOOD CHOLESTEROL INCREASED [None]
  - MUSCLE SPASMS [None]
  - DRUG INEFFECTIVE [None]
